FAERS Safety Report 16659903 (Version 1)
Quarter: 2019Q3

REPORT INFORMATION
  Report Type: Report from Study
  Country: None (occurrence: US)
  Receive Date: 20190802
  Receipt Date: 20190802
  Transmission Date: 20191004
  Serious: Yes (Other)
  Sender: FDA-Public Use
  Company Number: US-ABBVIE-19K-163-2870601-00

PATIENT
  Sex: Female

DRUGS (1)
  1. HUMIRA [Suspect]
     Active Substance: ADALIMUMAB
     Indication: RHEUMATOID ARTHRITIS
     Dosage: CITRATE FREE
     Route: 058

REACTIONS (11)
  - Alopecia [Unknown]
  - Loss of consciousness [Unknown]
  - Anxiety [Unknown]
  - Rib fracture [Unknown]
  - Fall [Unknown]
  - Visual impairment [Unknown]
  - Herpes zoster [Unknown]
  - Urinary incontinence [Not Recovered/Not Resolved]
  - Abdominal discomfort [Unknown]
  - Arthritis [Unknown]
  - Pain [Unknown]

NARRATIVE: CASE EVENT DATE: 2012
